FAERS Safety Report 7046875-1 (Version None)
Quarter: 2010Q4

REPORT INFORMATION
  Report Type: 
  Country: None (occurrence: None)
  Receive Date: 20101015
  Receipt Date: 20101001
  Transmission Date: 20110411
  Serious: Yes (Other)
  Sender: FDA-Public Use
  Company Number: PHHY2010US65248

PATIENT
  Sex: Male

DRUGS (5)
  1. ZOMETA [Suspect]
     Dosage: UNK
  2. REVLIMID [Suspect]
     Indication: MULTIPLE MYELOMA
     Dosage: UNK
     Dates: start: 20070301
  3. REVLIMID [Suspect]
     Dosage: 10 MG, QD
     Route: 048
     Dates: start: 20070901
  4. REVLIMID [Suspect]
     Dosage: 10 MG, QD
     Route: 048
     Dates: start: 20100301
  5. INTERFERON [Concomitant]
     Indication: MULTIPLE MYELOMA

REACTIONS (7)
  - ACUTE MYELOID LEUKAEMIA [None]
  - FATIGUE [None]
  - MYELODYSPLASTIC SYNDROME [None]
  - MYELOMA RECURRENCE [None]
  - NEOPLASM MALIGNANT [None]
  - OSTEONECROSIS OF JAW [None]
  - PANCYTOPENIA [None]
